FAERS Safety Report 4437802-1 (Version None)
Quarter: 2004Q3

REPORT INFORMATION
  Report Type: 
  Country: None (occurrence: None)
  Receive Date: 20040831
  Receipt Date: 20040819
  Transmission Date: 20050211
  Serious: Yes (Other)
  Sender: FDA-Public Use
  Company Number: BR-BRISTOL-MYERS SQUIBB COMPANY-12679262

PATIENT
  Age: 40 Year
  Sex: Male
  Weight: 68 kg

DRUGS (3)
  1. REYATAZ [Suspect]
     Indication: HIV INFECTION
     Route: 048
     Dates: start: 20040415
  2. STAVUDINE [Suspect]
     Indication: HIV INFECTION
     Dates: start: 20040601
  3. BIOVIR [Suspect]
     Indication: HIV INFECTION
     Dosage: ^300 MG^
     Dates: start: 20040401, end: 20040601

REACTIONS (2)
  - ANAEMIA [None]
  - PSYCHOTIC DISORDER [None]
